FAERS Safety Report 5240574-4 (Version None)
Quarter: 2007Q1

REPORT INFORMATION
  Report Type: 
  Country: None (occurrence: None)
  Receive Date: 20070219
  Receipt Date: 20070209
  Transmission Date: 20070707
  Serious: Yes (Other)
  Sender: FDA-Public Use
  Company Number: JP-ROCHE-482659

PATIENT
  Age: 18 Year
  Sex: Female

DRUGS (2)
  1. TAMIFLU [Suspect]
     Indication: INFLUENZA
     Route: 048
     Dates: start: 20070204, end: 20070204
  2. RELENZA [Concomitant]
     Route: 055

REACTIONS (3)
  - DELIRIUM [None]
  - DELUSION [None]
  - HALLUCINATION [None]
